FAERS Safety Report 4604825-9 (Version None)
Quarter: 2005Q2

REPORT INFORMATION
  Report Type: 
  Country: None (occurrence: None)
  Receive Date: 20050224
  Receipt Date: 20040823
  Transmission Date: 20051028
  Serious: Yes (Death)
  Sender: FDA-Public Use
  Company Number: 04P-163-0271595-00

PATIENT
  Age: 66 Year
  Sex: Male

DRUGS (1)
  1. DILAUDID [Suspect]
     Dosage: 200 MCG/ML, INTRAVENOUS
     Route: 042
     Dates: start: 20040801, end: 20040801

REACTIONS (4)
  - MEDICATION ERROR [None]
  - OVERDOSE [None]
  - RESPIRATORY ARREST [None]
  - STUPOR [None]
